FAERS Safety Report 6179837-7 (Version None)
Quarter: 2009Q2

REPORT INFORMATION
  Report Type: 
  Country: None (occurrence: None)
  Receive Date: 20090505
  Receipt Date: 20090501
  Transmission Date: 20091009
  Serious: Yes (Other)
  Sender: FDA-Public Use
  Company Number: US-ABBOTT-09P-163-0571117-00

PATIENT
  Age: 21 Year
  Sex: Female

DRUGS (3)
  1. KALETRA [Suspect]
     Indication: ANTIVIRAL TREATMENT
     Route: 048
     Dates: start: 20081126
  2. ATRIPLA [Suspect]
     Indication: ANTIVIRAL TREATMENT
     Route: 048
     Dates: end: 20081126
  3. LAMIVUDINE AND ZIDOVUDINE [Suspect]
     Indication: ANTIVIRAL TREATMENT
     Route: 048
     Dates: start: 20081126

REACTIONS (2)
  - PRE-ECLAMPSIA [None]
  - STILLBIRTH [None]
